FAERS Safety Report 9333168 (Version 2)
Quarter: 2013Q4

REPORT INFORMATION
  Report Type: Spontaneous
  Country: GB (occurrence: GB)
  Receive Date: 20130606
  Receipt Date: 20131010
  Transmission Date: 20140711
  Serious: Yes (Death, Other)
  Sender: FDA-Public Use
  Company Number: GB-ELI_LILLY_AND_COMPANY-GB201302004944

PATIENT
  Age: 52 Year
  Sex: Female

DRUGS (5)
  1. EFIENT [Suspect]
     Indication: STENT PLACEMENT
     Dosage: UNK, UNKNOWN
     Route: 050
     Dates: start: 20130118
  2. EFIENT [Suspect]
     Dosage: 10 MG, QD
     Route: 050
  3. HEPARIN SODIUM [Suspect]
     Route: 042
  4. ASPIRIN [Suspect]
  5. REOPRO [Suspect]

REACTIONS (2)
  - Cerebral haemorrhage [Fatal]
  - Coronary artery thrombosis [Unknown]
